FAERS Safety Report 10946446 (Version 2)
Quarter: 2015Q2

REPORT INFORMATION
  Report Type: Spontaneous
  Country: CO (occurrence: CO)
  Receive Date: 20150323
  Receipt Date: 20150422
  Transmission Date: 20150821
  Serious: Yes (Death, Other)
  Sender: FDA-Public Use
  Company Number: CO-PFIZER INC-2015102529

PATIENT
  Age: 94 Year
  Sex: Female

DRUGS (1)
  1. NORVASC [Suspect]
     Active Substance: AMLODIPINE BESYLATE
     Dosage: 5 MG, 2X/WEEK
     Route: 048

REACTIONS (3)
  - Pneumonia [Fatal]
  - Thrombosis [Unknown]
  - Overdose [Unknown]

NARRATIVE: CASE EVENT DATE: 201504
